FAERS Safety Report 10015297 (Version 1)
Quarter: 2014Q1

REPORT INFORMATION
  Report Type: Spontaneous
  Country: US (occurrence: US)
  Receive Date: 20140317
  Receipt Date: 20140317
  Transmission Date: 20141002
  Serious: No
  Sender: FDA-Public Use
  Company Number: US-PFIZER INC-2014071447

PATIENT
  Age: 52 Year
  Sex: Female

DRUGS (7)
  1. DETROL [Suspect]
     Dosage: UNK
  2. DILANTIN [Suspect]
     Dosage: UNK
  3. ZOLOFT [Suspect]
     Dosage: UNK
  4. TUSSIN CF [Suspect]
     Dosage: UNK
  5. LORABID [Suspect]
     Dosage: UNK
  6. PROZAC [Suspect]
     Dosage: UNK
  7. ZANAFLEX [Suspect]
     Dosage: UNK

REACTIONS (1)
  - Drug hypersensitivity [Unknown]
